FAERS Safety Report 21657545 (Version 4)
Quarter: 2023Q1

REPORT INFORMATION
  Report Type: Report from Study
  Country: BR (occurrence: None)
  Receive Date: 20221129
  Receipt Date: 20230120
  Transmission Date: 20230418
  Serious: Yes (Death, Hospitalization)
  Sender: FDA-Public Use
  Company Number: BR-ROCHE-3184263

PATIENT
  Age: 71 Year
  Sex: Female
  Weight: 54.4 kg

DRUGS (39)
  1. POLATUZUMAB VEDOTIN [Suspect]
     Active Substance: POLATUZUMAB VEDOTIN
     Indication: Diffuse large B-cell lymphoma
     Dosage: AS PER PROTOCOL.?DATE OF MOST RECENT DOSE OF POLATUZUMAB VEDOTIN PRIOR TO AE AND SAE 31/AUG/2022 AT
     Route: 042
     Dates: start: 20220525
  2. RITUXIMAB [Suspect]
     Active Substance: RITUXIMAB
     Indication: Diffuse large B-cell lymphoma
     Dosage: AS PER PROTOCOL.?DATE OF MOST RECENT DOSE OF POLATUZUMAB VEDOTIN PRIOR TO AE AND SAE 31/AUG/2022 AT
     Route: 041
     Dates: start: 20220525
  3. GEMCITABINE [Suspect]
     Active Substance: GEMCITABINE
     Indication: Diffuse large B-cell lymphoma
     Dosage: AS PER PROTOCOL?DATE OF MOST RECENT DOSE OF GEMCITABINE PRIOR TO AE AND SAE 28/JUL/2022 AT 1490 MG
     Route: 042
     Dates: start: 20220526
  4. OXALIPLATIN [Suspect]
     Active Substance: OXALIPLATIN
     Indication: Diffuse large B-cell lymphoma
     Dosage: AS PER PROTOCOL.?DATE OF MOST RECENT DOSE OF OXALIPLATIN PRIOR TO AE AND SAE 28/JUL/2022 AT 149 MG
     Route: 042
     Dates: start: 20220526
  5. ACETAMINOPHEN [Concomitant]
     Active Substance: ACETAMINOPHEN
     Dosage: 15/JUN/2022, 06/JUL/2022, 27/JUL/2022,
     Route: 048
     Dates: start: 20220525, end: 20220525
  6. ACETAMINOPHEN [Concomitant]
     Active Substance: ACETAMINOPHEN
     Route: 048
     Dates: start: 20220615, end: 20220615
  7. ACETAMINOPHEN [Concomitant]
     Active Substance: ACETAMINOPHEN
     Route: 048
     Dates: start: 20220706, end: 20220706
  8. HYDROCORTISONE [Concomitant]
     Active Substance: HYDROCORTISONE
     Dosage: 15/JUN/2022, 06/JUL/2022, 27/JUL/2022,
     Route: 042
     Dates: start: 20220525, end: 20220525
  9. HYDROCORTISONE [Concomitant]
     Active Substance: HYDROCORTISONE
     Route: 042
     Dates: start: 20220615, end: 20220615
  10. HYDROCORTISONE [Concomitant]
     Active Substance: HYDROCORTISONE
     Route: 042
     Dates: start: 20220706, end: 20220706
  11. DIPHENHYDRAMINE [Concomitant]
     Active Substance: DIPHENHYDRAMINE
     Dosage: 15/JUN/2022, 06/JUL/2022, 27/JUL/2022,
     Route: 042
     Dates: start: 20220525, end: 20220525
  12. DIPHENHYDRAMINE [Concomitant]
     Active Substance: DIPHENHYDRAMINE
     Route: 042
     Dates: start: 20220615, end: 20220615
  13. ONDANSETRON [Concomitant]
     Active Substance: ONDANSETRON
     Dosage: 16/JUN/2022, 07/JUL/2022, 28/JUL/2022
     Route: 042
     Dates: start: 20220526, end: 20220526
  14. ONDANSETRON [Concomitant]
     Active Substance: ONDANSETRON
     Route: 042
     Dates: start: 20220616, end: 20220616
  15. ONDANSETRON [Concomitant]
     Active Substance: ONDANSETRON
     Route: 042
     Dates: start: 20220707, end: 20220707
  16. DEXAMETHASONE [Concomitant]
     Active Substance: DEXAMETHASONE
     Dosage: 16/JUN/2022, 07/JUL/2022, 28/JUL/2022
     Route: 042
     Dates: start: 20220526
  17. DEXAMETHASONE [Concomitant]
     Active Substance: DEXAMETHASONE
     Route: 042
     Dates: start: 20220616, end: 20220616
  18. FUROSEMIDE [Concomitant]
     Active Substance: FUROSEMIDE
     Route: 042
     Dates: start: 20220526, end: 20220526
  19. ALLOPURINOL [Concomitant]
     Active Substance: ALLOPURINOL
     Route: 048
     Dates: start: 20220524, end: 20220614
  20. ALLOPURINOL [Concomitant]
     Active Substance: ALLOPURINOL
     Route: 048
     Dates: start: 20220615
  21. OMEPRAZOLE [Concomitant]
     Active Substance: OMEPRAZOLE
     Indication: Gastritis
     Route: 048
     Dates: start: 20220524
  22. DIPYRONE [Concomitant]
     Active Substance: DIPYRONE
     Route: 048
     Dates: start: 20220524
  23. ACYCLOVIR [Concomitant]
     Active Substance: ACYCLOVIR
     Route: 048
     Dates: start: 20220524
  24. BACTRIM [Concomitant]
     Active Substance: SULFAMETHOXAZOLE\TRIMETHOPRIM
     Route: 048
     Dates: start: 20220524
  25. BISACODYL [Concomitant]
     Active Substance: BISACODYL
     Indication: Constipation
     Route: 048
     Dates: start: 20220524
  26. BROMOPRIDE [Concomitant]
     Active Substance: BROMOPRIDE
     Indication: Gastritis
     Route: 048
     Dates: start: 20220510
  27. LACTULOSE [Concomitant]
     Active Substance: LACTULOSE
     Route: 048
     Dates: start: 20220510
  28. CODEINE [Concomitant]
     Active Substance: CODEINE
     Route: 048
     Dates: start: 20220510
  29. LEVOTHYROXINE [Concomitant]
     Active Substance: LEVOTHYROXINE
     Indication: Hypothyroidism
     Route: 048
     Dates: start: 20220610
  30. SIMETHICONE (DIMETHICONE) [Concomitant]
     Active Substance: DIMETHICONE
     Route: 048
     Dates: start: 20220524
  31. ARTIFICIAL SALIVA [Concomitant]
     Indication: Depression
     Route: 061
     Dates: start: 20220510
  32. SERTRALINE [Concomitant]
     Active Substance: SERTRALINE HYDROCHLORIDE
     Indication: Depression
     Route: 048
  33. RIVOTRIL [Concomitant]
     Active Substance: CLONAZEPAM
     Indication: Depression
     Route: 048
  34. PREDNISONE [Concomitant]
     Active Substance: PREDNISONE
     Dosage: 1 MG/KG/DAY
     Route: 048
     Dates: start: 20220524, end: 20220525
  35. DOMPERIDONE [Concomitant]
     Active Substance: DOMPERIDONE
     Indication: Constipation
     Route: 048
     Dates: start: 20220410
  36. AMOXICILLIN [Concomitant]
     Active Substance: AMOXICILLIN
     Route: 048
     Dates: start: 20220824, end: 20220830
  37. LEVOFLOXACIN [Concomitant]
     Active Substance: LEVOFLOXACIN
     Indication: Pneumonia
     Route: 048
     Dates: start: 20220817, end: 20220823
  38. AMITRIPTYLINE [Concomitant]
     Active Substance: AMITRIPTYLINE
     Indication: Depression
     Route: 048
  39. SINOVAC COVID-19 VACCINE [Concomitant]

REACTIONS (1)
  - Pulmonary sepsis [Fatal]

NARRATIVE: CASE EVENT DATE: 20220901
